FAERS Safety Report 5598429-1 (Version None)
Quarter: 2008Q1

REPORT INFORMATION
  Report Type: 
  Country: None (occurrence: None)
  Receive Date: 20080122
  Receipt Date: 20080117
  Transmission Date: 20080703
  Serious: Yes (Hospitalization)
  Sender: FDA-Public Use
  Company Number: GB-GENENTECH-253089

PATIENT
  Sex: Female

DRUGS (6)
  1. BEVACIZUMAB [Suspect]
     Indication: BREAST CANCER METASTATIC
     Dosage: 895.5 MG, Q3W
     Route: 042
     Dates: start: 20070807
  2. CAPECITABINE [Suspect]
     Indication: BREAST CANCER METASTATIC
     Dosage: 1500 MG, UNK
     Dates: start: 20070807
  3. LANSOPRAZOLE [Concomitant]
     Indication: GASTROOESOPHAGEAL REFLUX DISEASE
     Dosage: 30 MG, UNK
     Dates: start: 20050101
  4. FUROSEMIDE [Concomitant]
     Indication: FLUID RETENTION
     Dosage: 20 MG, QD
     Dates: start: 20050101
  5. BECOTIDE [Concomitant]
     Indication: ASTHMA
     Dosage: 1 PUFF, UNK
     Dates: start: 19970101
  6. TERBUTALINE SULFATE [Concomitant]
     Indication: ASTHMA
     Dosage: UNK, PRN
     Dates: start: 19970101

REACTIONS (1)
  - LETHARGY [None]
